FAERS Safety Report 21730145 (Version 2)
Quarter: 2023Q1

REPORT INFORMATION
  Report Type: Spontaneous
  Country: JP (occurrence: JP)
  Receive Date: 20221214
  Receipt Date: 20230224
  Transmission Date: 20230418
  Serious: No
  Sender: FDA-Public Use
  Company Number: JP-JAZZ-2022-JP-037681

PATIENT
  Age: 57 Year
  Sex: Female
  Weight: 57 kg

DRUGS (1)
  1. DEFITELIO [Suspect]
     Active Substance: DEFIBROTIDE SODIUM
     Indication: Graft versus host disease in liver
     Dosage: 25 MG/KG DAILY
     Route: 042
     Dates: start: 20220818, end: 20220823

REACTIONS (1)
  - Off label use [Unknown]
